FAERS Safety Report 5932504-4 (Version None)
Quarter: 2008Q4

REPORT INFORMATION
  Report Type: 
  Country: None (occurrence: None)
  Receive Date: 20081028
  Receipt Date: 20081020
  Transmission Date: 20090506
  Serious: Yes (Other)
  Sender: FDA-Public Use
  Company Number: GB-AMGEN-US311361

PATIENT
  Sex: Female

DRUGS (6)
  1. ENBREL [Suspect]
     Indication: DRUG USE FOR UNKNOWN INDICATION
     Route: 058
     Dates: start: 20080101
  2. ACETAMINOPHEN W/ CODEINE [Concomitant]
     Dosage: 2 TABLETS UP TO 4 TIMES DAILY AS REQUIRED
     Route: 048
  3. ASPIRIN [Concomitant]
     Route: 048
  4. OMEPRAZOLE [Concomitant]
     Dosage: UNKNOWN
     Route: 065
  5. PREDNISOLONE [Concomitant]
     Indication: RHEUMATOID ARTHRITIS
     Route: 048
  6. HYDROXYCHLOROQUINE [Concomitant]
     Route: 065

REACTIONS (1)
  - GENITAL HAEMORRHAGE [None]
